FAERS Safety Report 23593264 (Version 1)
Quarter: 2024Q1

REPORT INFORMATION
  Report Type: Spontaneous
  Country: US (occurrence: US)
  Receive Date: 20240304
  Receipt Date: 20240304
  Transmission Date: 20240410
  Serious: No
  Sender: FDA-Public Use
  Company Number: US-PFIZER INC-202400055499

PATIENT
  Age: 69 Year
  Sex: Female

DRUGS (1)
  1. IBRANCE [Suspect]
     Active Substance: PALBOCICLIB
     Indication: Breast cancer
     Dosage: 125 MG, CYCLIC, ONE TABLET EVERY MORNING FOR 21 DAYS THEN 7 DAYS OFF
     Dates: start: 202303

REACTIONS (2)
  - Alopecia [Unknown]
  - Diarrhoea [Unknown]
